FAERS Safety Report 22380739 (Version 2)
Quarter: 2023Q2

REPORT INFORMATION
  Report Type: Report from Study
  Country: US (occurrence: US)
  Receive Date: 20230530
  Receipt Date: 20230630
  Transmission Date: 20230722
  Serious: Yes (Life-Threatening, Hospitalization)
  Sender: FDA-Public Use
  Company Number: US-BEH-2023158968

PATIENT
  Age: 43 Year
  Sex: Female
  Weight: 64.399 kg

DRUGS (1)
  1. ZEMAIRA [Suspect]
     Active Substance: .ALPHA.1-PROTEINASE INHIBITOR HUMAN
     Indication: Alpha-1 antitrypsin deficiency
     Dosage: UNK, QW(60 PRODUCT STRENGTH)
     Route: 042

REACTIONS (7)
  - Pulmonary embolism [Unknown]
  - Dyspnoea [Unknown]
  - Cough [Unknown]
  - Tachycardia [Unknown]
  - Pneumonia [Recovering/Resolving]
  - Pyrexia [Recovering/Resolving]
  - Cough [Recovering/Resolving]
